FAERS Safety Report 10189448 (Version 2)
Quarter: 2014Q2

REPORT INFORMATION
  Report Type: Spontaneous
  Country: FR (occurrence: FR)
  Receive Date: 20140522
  Receipt Date: 20140522
  Transmission Date: 20141212
  Serious: Yes (Hospitalization)
  Sender: FDA-Public Use
  Company Number: FR-PFIZER INC-K201000576

PATIENT
  Age: 80 Year
  Sex: Male

DRUGS (7)
  1. RAMIPRIL [Suspect]
     Dosage: UNK
     Route: 048
     Dates: start: 20100101, end: 20100202
  2. RAMIPRIL [Suspect]
     Dosage: UNK
     Route: 048
     Dates: start: 201002, end: 201003
  3. CORDARONE [Suspect]
     Dosage: 200 MG, 1X/DAY
     Route: 048
     Dates: start: 200910, end: 20100322
  4. PREVISCAN [Suspect]
     Dosage: UNK
     Route: 048
     Dates: start: 200910, end: 201003
  5. CARDENSIEL [Suspect]
     Dosage: UNK
     Route: 048
     Dates: start: 200910, end: 20100322
  6. ESOMEPRAZOLE [Suspect]
     Dosage: UNK
     Route: 048
     Dates: start: 200909, end: 20100322
  7. ROSUVASTATIN [Suspect]
     Dosage: UNK
     Route: 048
     Dates: start: 201001, end: 20100322

REACTIONS (6)
  - Vascular purpura [Recovering/Resolving]
  - Ecchymosis [Recovering/Resolving]
  - Pain in extremity [Recovering/Resolving]
  - Erythema [Recovering/Resolving]
  - Feeling hot [Recovering/Resolving]
  - Erysipelas [Recovering/Resolving]
